FAERS Safety Report 8842235 (Version 1)
Quarter: 2012Q4

REPORT INFORMATION
  Report Type: 
  Country: US (occurrence: US)
  Receive Date: 20121016
  Receipt Date: 20121016
  Transmission Date: 20130627
  Serious: No
  Sender: FDA-Public Use
  Company Number: US-BAYER-2012-107566

PATIENT
  Age: 55 Year
  Sex: Male

DRUGS (3)
  1. BETASERON [Suspect]
     Indication: MULTIPLE SCLEROSIS
     Dosage: 0.25 mg, UNK
     Route: 058
     Dates: start: 20120920
  2. TYLENOL [PARACETAMOL] [Concomitant]
  3. IBUPROFEN [Concomitant]

REACTIONS (1)
  - Influenza like illness [None]
